FAERS Safety Report 8059115-1 (Version None)
Quarter: 2012Q1

REPORT INFORMATION
  Report Type: 
  Country: None (occurrence: None)
  Receive Date: 20120120
  Receipt Date: 20120116
  Transmission Date: 20120608
  Serious: Yes (Other)
  Sender: FDA-Public Use
  Company Number: US-PFIZER INC-2011296413

PATIENT
  Sex: Female
  Weight: 86.168 kg

DRUGS (1)
  1. EFFEXOR XR [Suspect]
     Indication: DEPRESSION
     Dosage: 150 MG, 1X/DAY
     Route: 048
     Dates: start: 20050101, end: 20111201

REACTIONS (3)
  - AGITATION [None]
  - FEELING ABNORMAL [None]
  - WITHDRAWAL SYNDROME [None]
